FAERS Safety Report 22056624 (Version 1)
Quarter: 2023Q1

REPORT INFORMATION
  Report Type: Spontaneous
  Country: DE (occurrence: DE)
  Receive Date: 20230302
  Receipt Date: 20230302
  Transmission Date: 20230418
  Serious: Yes (Hospitalization, Other)
  Sender: FDA-Public Use
  Company Number: DE-NOVOPROD-1026803

PATIENT
  Sex: Female
  Weight: 88 kg

DRUGS (4)
  1. SAXENDA [Suspect]
     Active Substance: LIRAGLUTIDE
     Indication: Obesity
     Dosage: UNK
     Route: 058
     Dates: end: 20230213
  2. VENLAFAXINE HYDROCHLORIDE [Concomitant]
     Active Substance: VENLAFAXINE HYDROCHLORIDE
     Indication: Depression
     Dosage: 75 MG, QD(0-1-0)
  3. FLUTICASONE PROPIONATE\FORMOTEROL FUMARATE [Concomitant]
     Active Substance: FLUTICASONE PROPIONATE\FORMOTEROL FUMARATE
     Indication: Asthma
     Dosage: 1-0-1 (NOT FURTHER SPECIFIED)
  4. SPIRIVA [Concomitant]
     Active Substance: TIOTROPIUM BROMIDE MONOHYDRATE
     Indication: Asthma
     Dosage: 2-0-0 (NOT FURTHER SPECIFIED)

REACTIONS (1)
  - Mechanical ileus [Recovered/Resolved]

NARRATIVE: CASE EVENT DATE: 20230202
